FAERS Safety Report 8645514 (Version 2)
Quarter: 2012Q4

REPORT INFORMATION
  Report Type: 
  Country: BR (occurrence: BR)
  Receive Date: 20120702
  Receipt Date: 20121031
  Transmission Date: 20130627
  Serious: Yes (Hospitalization)
  Sender: FDA-Public Use
  Company Number: BR-ASTRAZENECA-2012SE42528

PATIENT
  Age: 66 Year
  Sex: Female
  Weight: 74 kg

DRUGS (7)
  1. OMEPRAZOLE [Suspect]
     Dosage: DAILY
     Route: 048
     Dates: start: 2008
  2. SEROQUEL [Suspect]
     Indication: DEPRESSION
     Route: 048
     Dates: start: 2008
  3. CRESTOR [Suspect]
     Indication: BLOOD CHOLESTEROL INCREASED
     Route: 048
     Dates: start: 200811
  4. PLAVIX [Suspect]
     Route: 048
     Dates: start: 2008, end: 201012
  5. NORVASC [Concomitant]
     Route: 048
     Dates: start: 2008
  6. ENDOFOLIN [Concomitant]
     Dosage: TWO TIMES A DAY
     Route: 048
     Dates: start: 2008
  7. VITAMIN D [Concomitant]
     Route: 048
     Dates: start: 2008

REACTIONS (5)
  - Aortic aneurysm [Recovered/Resolved]
  - Platelet count decreased [Recovered/Resolved]
  - Fall [Unknown]
  - Abdominal pain [Unknown]
  - Off label use [Not Recovered/Not Resolved]
